FAERS Safety Report 6697630-3 (Version None)
Quarter: 2010Q2

REPORT INFORMATION
  Report Type: 
  Country: None (occurrence: None)
  Receive Date: 20100423
  Receipt Date: 20100416
  Transmission Date: 20101027
  Serious: Yes (Hospitalization)
  Sender: FDA-Public Use
  Company Number: 2010AL002326

PATIENT
  Age: 76 Year
  Sex: Female

DRUGS (3)
  1. HYDROCORTISONE CREAM USP, 1% (OTC) (ALPHARMA) [Suspect]
     Indication: ARTHROPOD BITE
     Dosage: 1 PCT; QD; TOP
     Route: 061
     Dates: start: 20091230, end: 20091231
  2. ATENOLOL [Concomitant]
  3. ASPIRIN [Concomitant]

REACTIONS (8)
  - BURNING SENSATION [None]
  - DRUG INEFFECTIVE [None]
  - ERYTHEMA [None]
  - OEDEMA PERIPHERAL [None]
  - PAIN [None]
  - SKIN DISCOLOURATION [None]
  - VASCULITIS [None]
  - WOUND SECRETION [None]
